FAERS Safety Report 25715588 (Version 1)
Quarter: 2025Q3

REPORT INFORMATION
  Report Type: Report from Study
  Country: US (occurrence: US)
  Receive Date: 20250822
  Receipt Date: 20250822
  Transmission Date: 20251021
  Serious: Yes (Death, Other)
  Sender: ACADIA PHARMACEUTICALS
  Company Number: US-ACADIA PHARMACEUTICALS INC.-ACA-2025-PIM-009411

PATIENT
  Age: 82 Year
  Sex: Male

DRUGS (13)
  1. NUPLAZID [Suspect]
     Active Substance: PIMAVANSERIN TARTRATE
     Indication: Parkinson^s disease
     Dosage: 34 MILLIGRAM, QD
     Route: 048
     Dates: start: 20250327, end: 20250809
  2. BICALUTAMIDE [Concomitant]
     Active Substance: BICALUTAMIDE
  3. CRESTOR [Concomitant]
     Active Substance: ROSUVASTATIN CALCIUM
  4. LUMIGAN [Concomitant]
     Active Substance: BIMATOPROST
     Route: 047
  5. LUPRON DEPOT [Concomitant]
     Active Substance: LEUPROLIDE ACETATE
  6. MELATONIN [Concomitant]
     Active Substance: MELATONIN
  7. MIDODRINE [Concomitant]
     Active Substance: MIDODRINE
  8. NEUPRO [Concomitant]
     Active Substance: ROTIGOTINE
     Dosage: 2MG/24HR TD PATCH
  9. OMEPRAZOLE [Concomitant]
     Active Substance: OMEPRAZOLE
  10. PRESERVISION AREDS 2 + MULTIVITAMIN [Concomitant]
  11. SINEMET CR [Concomitant]
     Active Substance: CARBIDOPA\LEVODOPA
  12. SINEMET [Concomitant]
     Active Substance: CARBIDOPA\LEVODOPA
  13. VITAMIN D3 [Concomitant]
     Active Substance: CHOLECALCIFEROL

REACTIONS (2)
  - Parkinson^s disease [Fatal]
  - Aspiration [Fatal]

NARRATIVE: CASE EVENT DATE: 20250809
